FAERS Safety Report 8859516 (Version 1)
Quarter: 2012Q4

REPORT INFORMATION
  Report Type: 
  Country: US (occurrence: US)
  Receive Date: 20121024
  Receipt Date: 20121024
  Transmission Date: 20130627
  Serious: No
  Sender: FDA-Public Use
  Company Number: US-ROCHE-GNE217100

PATIENT
  Age: 39 Year
  Sex: Female
  Weight: 73.55 kg

DRUGS (3)
  1. RAPTIVA [Suspect]
     Indication: PSORIASIS
     Dosage: .5 mL, 1/Week
     Route: 058
     Dates: start: 20050819
  2. RAPTIVA [Suspect]
     Indication: PUSTULAR PSORIASIS
  3. EPIPEN [Concomitant]
     Dosage: CONDITINING DOSE 0.5 ML
     Route: 065

REACTIONS (8)
  - Paraesthesia [Recovered/Resolved]
  - Chills [Unknown]
  - Headache [Unknown]
  - Tenderness [Unknown]
  - Pruritus [Unknown]
  - Skin plaque [Unknown]
  - Skin exfoliation [Unknown]
  - Sleep disorder [Unknown]
